FAERS Safety Report 4458221-8 (Version None)
Quarter: 2004Q3

REPORT INFORMATION
  Report Type: 
  Country: None (occurrence: None)
  Receive Date: 20040922
  Receipt Date: 20040909
  Transmission Date: 20050211
  Serious: Yes (Hospitalization)
  Sender: FDA-Public Use
  Company Number: 2004232670FR

PATIENT
  Sex: Female

DRUGS (6)
  1. CAMPTOSAR [Suspect]
  2. HALDOL [Suspect]
     Indication: PSYCHOTIC DISORDER
  3. ATROPINE [Concomitant]
  4. FLUOROURACIL [Concomitant]
  5. LEUCOVORIN CALCIUM [Concomitant]
  6. NEUROLEPTICS [Concomitant]

REACTIONS (3)
  - COMA [None]
  - DRUG INTERACTION [None]
  - VOMITING [None]
